FAERS Safety Report 20394409 (Version 1)
Quarter: 2022Q1

REPORT INFORMATION
  Report Type: Report from Study
  Country: US (occurrence: US)
  Receive Date: 20220129
  Receipt Date: 20220129
  Transmission Date: 20220423
  Serious: Yes (Other)
  Sender: FDA-Public Use
  Company Number: US-TAKEDA-US201517471

PATIENT
  Age: 72 Year
  Sex: Female

DRUGS (32)
  1. TEDUGLUTIDE [Suspect]
     Active Substance: TEDUGLUTIDE
     Indication: Short-bowel syndrome
     Dosage: UNK
     Route: 065
     Dates: start: 20131021
  2. TEDUGLUTIDE [Suspect]
     Active Substance: TEDUGLUTIDE
     Indication: Short-bowel syndrome
     Dosage: UNK
     Route: 065
     Dates: start: 20131021
  3. TEDUGLUTIDE [Suspect]
     Active Substance: TEDUGLUTIDE
     Indication: Short-bowel syndrome
     Dosage: UNK
     Route: 065
     Dates: start: 20131021
  4. TEDUGLUTIDE [Suspect]
     Active Substance: TEDUGLUTIDE
     Indication: Short-bowel syndrome
     Dosage: UNK
     Route: 065
     Dates: start: 20131021
  5. TEDUGLUTIDE [Suspect]
     Active Substance: TEDUGLUTIDE
     Dosage: 2.35 MILLIGRAM, QD
     Route: 065
     Dates: start: 20131021, end: 20141029
  6. TEDUGLUTIDE [Suspect]
     Active Substance: TEDUGLUTIDE
     Dosage: 2.35 MILLIGRAM, QD
     Route: 065
     Dates: start: 20131021, end: 20141029
  7. TEDUGLUTIDE [Suspect]
     Active Substance: TEDUGLUTIDE
     Dosage: 2.35 MILLIGRAM, QD
     Route: 065
     Dates: start: 20131021, end: 20141029
  8. TEDUGLUTIDE [Suspect]
     Active Substance: TEDUGLUTIDE
     Dosage: 2.35 MILLIGRAM, QD
     Route: 065
     Dates: start: 20131021, end: 20141029
  9. TEDUGLUTIDE [Suspect]
     Active Substance: TEDUGLUTIDE
     Dosage: 2.35 MILLIGRAM, 3/WEEK
     Route: 065
     Dates: start: 20141125, end: 20151216
  10. TEDUGLUTIDE [Suspect]
     Active Substance: TEDUGLUTIDE
     Dosage: 2.35 MILLIGRAM, 3/WEEK
     Route: 065
     Dates: start: 20141125, end: 20151216
  11. TEDUGLUTIDE [Suspect]
     Active Substance: TEDUGLUTIDE
     Dosage: 2.35 MILLIGRAM, 3/WEEK
     Route: 065
     Dates: start: 20141125, end: 20151216
  12. TEDUGLUTIDE [Suspect]
     Active Substance: TEDUGLUTIDE
     Dosage: 2.35 MILLIGRAM, 3/WEEK
     Route: 065
     Dates: start: 20141125, end: 20151216
  13. TEDUGLUTIDE [Suspect]
     Active Substance: TEDUGLUTIDE
     Dosage: 2.35 MILLIGRAM, 3/WEEK
     Route: 065
     Dates: start: 20160719, end: 20161201
  14. TEDUGLUTIDE [Suspect]
     Active Substance: TEDUGLUTIDE
     Dosage: 2.35 MILLIGRAM, 3/WEEK
     Route: 065
     Dates: start: 20160719, end: 20161201
  15. TEDUGLUTIDE [Suspect]
     Active Substance: TEDUGLUTIDE
     Dosage: 2.35 MILLIGRAM, 3/WEEK
     Route: 065
     Dates: start: 20160719, end: 20161201
  16. TEDUGLUTIDE [Suspect]
     Active Substance: TEDUGLUTIDE
     Dosage: 2.35 MILLIGRAM, 3/WEEK
     Route: 065
     Dates: start: 20160719, end: 20161201
  17. TEDUGLUTIDE [Suspect]
     Active Substance: TEDUGLUTIDE
     Dosage: 2.35 MILLIGRAM, 3/WEEK
     Route: 065
     Dates: start: 20161215, end: 20170817
  18. TEDUGLUTIDE [Suspect]
     Active Substance: TEDUGLUTIDE
     Dosage: 2.35 MILLIGRAM, 3/WEEK
     Route: 065
     Dates: start: 20161215, end: 20170817
  19. TEDUGLUTIDE [Suspect]
     Active Substance: TEDUGLUTIDE
     Dosage: 2.35 MILLIGRAM, 3/WEEK
     Route: 065
     Dates: start: 20161215, end: 20170817
  20. TEDUGLUTIDE [Suspect]
     Active Substance: TEDUGLUTIDE
     Dosage: 2.35 MILLIGRAM, 3/WEEK
     Route: 065
     Dates: start: 20161215, end: 20170817
  21. TEDUGLUTIDE [Suspect]
     Active Substance: TEDUGLUTIDE
     Dosage: 2.35 MILLIGRAM, 3/WEEK
     Route: 065
     Dates: start: 20170901, end: 20170914
  22. TEDUGLUTIDE [Suspect]
     Active Substance: TEDUGLUTIDE
     Dosage: 2.35 MILLIGRAM, 3/WEEK
     Route: 065
     Dates: start: 20170901, end: 20170914
  23. TEDUGLUTIDE [Suspect]
     Active Substance: TEDUGLUTIDE
     Dosage: 2.35 MILLIGRAM, 3/WEEK
     Route: 065
     Dates: start: 20170901, end: 20170914
  24. TEDUGLUTIDE [Suspect]
     Active Substance: TEDUGLUTIDE
     Dosage: 2.35 MILLIGRAM, 3/WEEK
     Route: 065
     Dates: start: 20170901, end: 20170914
  25. TEDUGLUTIDE [Suspect]
     Active Substance: TEDUGLUTIDE
     Dosage: 2.35 MILLIGRAM, 3/WEEK
     Route: 065
     Dates: start: 20170928, end: 20180412
  26. TEDUGLUTIDE [Suspect]
     Active Substance: TEDUGLUTIDE
     Dosage: 2.35 MILLIGRAM, 3/WEEK
     Route: 065
     Dates: start: 20170928, end: 20180412
  27. TEDUGLUTIDE [Suspect]
     Active Substance: TEDUGLUTIDE
     Dosage: 2.35 MILLIGRAM, 3/WEEK
     Route: 065
     Dates: start: 20170928, end: 20180412
  28. TEDUGLUTIDE [Suspect]
     Active Substance: TEDUGLUTIDE
     Dosage: 2.35 MILLIGRAM, 3/WEEK
     Route: 065
     Dates: start: 20170928, end: 20180412
  29. VITAMIN A [Concomitant]
     Active Substance: VITAMIN A
     Indication: Vitamin A deficiency
     Dosage: 50 INTERNATIONAL UNIT, QD
     Route: 048
     Dates: start: 20200422
  30. LOSARTAN [Concomitant]
     Active Substance: LOSARTAN
     Indication: Hypertension
     Dosage: 25 MILLIGRAM, QD
     Route: 048
     Dates: start: 20181015
  31. CIPROFLOXACIN [Concomitant]
     Active Substance: CIPROFLOXACIN
     Indication: Device related infection
     Dosage: 500 MILLIGRAM, BID
     Route: 048
     Dates: start: 20170628, end: 20170712
  32. TRIFLURIDINE [Concomitant]
     Active Substance: TRIFLURIDINE
     Indication: Conjunctivitis viral
     Dosage: 1 GTT DROPS, 5 TIMES PER DAY
     Route: 047
     Dates: start: 20160623, end: 20160628

REACTIONS (2)
  - Herpes ophthalmic [Recovered/Resolved]
  - Lipase increased [Recovered/Resolved]

NARRATIVE: CASE EVENT DATE: 20151110
